FAERS Safety Report 8330184-4 (Version None)
Quarter: 2012Q2

REPORT INFORMATION
  Report Type: 
  Country: None (occurrence: None)
  Receive Date: 20120502
  Receipt Date: 20120430
  Transmission Date: 20120825
  Serious: Yes (Other)
  Sender: FDA-Public Use
  Company Number: GB-SP-2012-04593

PATIENT
  Sex: Male

DRUGS (2)
  1. IMMUCYST [Suspect]
     Indication: PRODUCT USED FOR UNKNOWN INDICATION
     Route: 065
     Dates: start: 20111011, end: 20111122
  2. IMMUCYST [Suspect]
     Route: 065
     Dates: start: 20111011, end: 20111122

REACTIONS (3)
  - INJURY [None]
  - BLOOD URINE PRESENT [None]
  - PULMONARY TUBERCULOSIS [None]
